FAERS Safety Report 23273508 (Version 4)
Quarter: 2023Q4

REPORT INFORMATION
  Report Type: Spontaneous
  Country: PL (occurrence: PL)
  Receive Date: 20231207
  Receipt Date: 20231228
  Transmission Date: 20240109
  Serious: Yes (Hospitalization)
  Sender: FDA-Public Use
  Company Number: PL-RECORDATI-2023007954

PATIENT
  Age: 64 Year
  Sex: Male

DRUGS (16)
  1. OMEPRAZOLE [Suspect]
     Active Substance: OMEPRAZOLE
     Indication: Arthralgia
     Dosage: 40 MG, PER DAY
     Route: 048
  2. PANTOPRAZOLE [Concomitant]
     Active Substance: PANTOPRAZOLE
     Indication: Reflux gastritis
     Dosage: UNK
     Route: 065
  3. CIPROFLOXACIN [Interacting]
     Active Substance: CIPROFLOXACIN
     Indication: Urinary tract infection
     Dosage: 500 MG, 2X PER DAY
     Route: 048
  4. CIPROFLOXACIN [Interacting]
     Active Substance: CIPROFLOXACIN
     Indication: Type 2 diabetes mellitus
  5. DAPAGLIFLOZIN PROPANEDIOL [Interacting]
     Active Substance: DAPAGLIFLOZIN PROPANEDIOL
     Indication: Type 2 diabetes mellitus
     Dosage: 10 MILLIGRAM, QD
     Route: 048
  6. DEXKETOPROFEN [Interacting]
     Active Substance: DEXKETOPROFEN
     Indication: Arthralgia
     Dosage: 50 MG, 3X PER DAY
     Route: 048
  7. METFORMIN HYDROCHLORIDE [Interacting]
     Active Substance: METFORMIN HYDROCHLORIDE
     Indication: Type 2 diabetes mellitus
     Dosage: 1000 MILLIGRAM, QD
     Route: 048
  8. METAMIZOLE [Interacting]
     Active Substance: METAMIZOLE
     Indication: Arthralgia
     Dosage: 1000 MG, 3X PER DAY
     Route: 048
  9. MIRTAZAPINE [Interacting]
     Active Substance: MIRTAZAPINE
     Indication: Insomnia
     Dosage: 15 MILLIGRAM, QD (AT NIGHT)/15 MILLIGRAM, QD EVENING
     Route: 065
  10. MIRTAZAPINE [Interacting]
     Active Substance: MIRTAZAPINE
     Indication: Depression
  11. OXYCODONE [Interacting]
     Active Substance: OXYCODONE
     Indication: Arthralgia
     Dosage: 20 MG, PER DAY, TITRATED DOSE
     Route: 040
  12. PREGABALIN [Interacting]
     Active Substance: PREGABALIN
     Indication: Arthralgia
     Dosage: 75 MG, 2X PER DAY
     Route: 048
  13. PREGABALIN [Interacting]
     Active Substance: PREGABALIN
     Indication: Insomnia
  14. SERTRALINE HYDROCHLORIDE [Interacting]
     Active Substance: SERTRALINE HYDROCHLORIDE
     Indication: Depression
     Dosage: 50 MG, IN THE MORNING
     Route: 048
  15. SERTRALINE HYDROCHLORIDE [Interacting]
     Active Substance: SERTRALINE HYDROCHLORIDE
     Indication: Insomnia
  16. ACETAMINOPHEN\TRAMADOL [Interacting]
     Active Substance: ACETAMINOPHEN\TRAMADOL
     Indication: Arthralgia
     Dosage: 75/650 MG, 3X PER DAY
     Route: 048

REACTIONS (5)
  - Arthralgia [Recovered/Resolved]
  - Sedation [Unknown]
  - Drug ineffective [Recovering/Resolving]
  - Drug interaction [Recovered/Resolved]
  - Contraindicated product administered [Unknown]
